FAERS Safety Report 7112747-7 (Version None)
Quarter: 2010Q4

REPORT INFORMATION
  Report Type: 
  Country: None (occurrence: None)
  Receive Date: 20101119
  Receipt Date: 20101112
  Transmission Date: 20110411
  Serious: Yes (Other)
  Sender: FDA-Public Use
  Company Number: IN-BRISTOL-MYERS SQUIBB COMPANY-15375611

PATIENT
  Sex: Male

DRUGS (2)
  1. WARFARIN SODIUM [Suspect]
     Dosage: RESUMED AT 12 WEEKS OF GESTATION.
     Route: 064
  2. HEPARIN SODIUM [Suspect]
     Route: 064

REACTIONS (4)
  - DYSMORPHISM [None]
  - EPIPHYSEAL DISORDER [None]
  - PREMATURE BABY [None]
  - RESPIRATORY DISTRESS [None]
